FAERS Safety Report 13381103 (Version 1)
Quarter: 2017Q1

REPORT INFORMATION
  Report Type: Spontaneous
  Country: US (occurrence: US)
  Receive Date: 20170329
  Receipt Date: 20170329
  Transmission Date: 20170429
  Serious: No
  Sender: FDA-Public Use
  Company Number: US-PFIZER INC-2017130742

PATIENT
  Sex: Female

DRUGS (1)
  1. EXEMESTANE. [Suspect]
     Active Substance: EXEMESTANE
     Dosage: UNK

REACTIONS (6)
  - Abdominal discomfort [Unknown]
  - Epigastric discomfort [Unknown]
  - Eyelid oedema [Unknown]
  - Rash [Unknown]
  - Urticaria [Unknown]
  - Lip swelling [Unknown]
